FAERS Safety Report 18546937 (Version 1)
Quarter: 2020Q4

REPORT INFORMATION
  Report Type: Spontaneous
  Country: GB (occurrence: GB)
  Receive Date: 20201125
  Receipt Date: 20201125
  Transmission Date: 20210114
  Serious: Yes (Death)
  Sender: FDA-Public Use
  Company Number: GB-MYLANLABS-2020M1067388

PATIENT
  Age: 66 Year
  Sex: Female

DRUGS (1)
  1. CLOZARIL [Suspect]
     Active Substance: CLOZAPINE
     Indication: SCHIZOPHRENIA
     Dosage: UNK
     Route: 048
     Dates: start: 20010701

REACTIONS (7)
  - Anaemia [Not Recovered/Not Resolved]
  - Monocyte count increased [Recovering/Resolving]
  - Mean cell haemoglobin concentration decreased [Not Recovered/Not Resolved]
  - Neutrophil count increased [Recovering/Resolving]
  - Platelet count increased [Not Recovered/Not Resolved]
  - Lung neoplasm malignant [Fatal]
  - Mean cell haemoglobin decreased [Not Recovered/Not Resolved]

NARRATIVE: CASE EVENT DATE: 20200623
